FAERS Safety Report 5817517-5 (Version None)
Quarter: 2008Q3

REPORT INFORMATION
  Report Type: 
  Country: None (occurrence: None)
  Receive Date: 20080722
  Receipt Date: 20080716
  Transmission Date: 20090109
  Serious: Yes (Hospitalization)
  Sender: FDA-Public Use
  Company Number: GR-JNJFOC-20080703596

PATIENT
  Sex: Female
  Weight: 88 kg

DRUGS (5)
  1. RISPERIDONE [Suspect]
     Indication: BIPOLAR DISORDER
     Route: 030
  2. PLACEBO [Suspect]
     Indication: BIPOLAR DISORDER
  3. OLANZAPINE [Suspect]
     Indication: BIPOLAR DISORDER
     Route: 048
  4. PLACEBO [Suspect]
     Route: 048
  5. INDERAL [Concomitant]
     Indication: BLOOD PRESSURE
     Route: 048

REACTIONS (9)
  - ANXIETY [None]
  - DEPRESSION [None]
  - FEAR [None]
  - FEELING GUILTY [None]
  - INSOMNIA [None]
  - NERVOUSNESS [None]
  - SELF ESTEEM DECREASED [None]
  - STRESS [None]
  - SUICIDAL IDEATION [None]
